FAERS Safety Report 4517246-4 (Version None)
Quarter: 2004Q4

REPORT INFORMATION
  Report Type: 
  Country: None (occurrence: None)
  Receive Date: 20041202
  Receipt Date: 20041123
  Transmission Date: 20050328
  Serious: Yes (Hospitalization, Other)
  Sender: FDA-Public Use
  Company Number: PR-MERCK-0411USA03845

PATIENT
  Sex: Female

DRUGS (3)
  1. VIOXX [Suspect]
     Indication: CHEST PAIN
     Route: 048
     Dates: start: 20030101, end: 20040801
  2. VIOXX [Suspect]
     Indication: FLANK PAIN
     Route: 048
     Dates: start: 20030101, end: 20040801
  3. INSULIN [Concomitant]
     Route: 065

REACTIONS (1)
  - CARDIAC DISORDER [None]
